FAERS Safety Report 5239359-4 (Version None)
Quarter: 2007Q1

REPORT INFORMATION
  Report Type: 
  Country: None (occurrence: None)
  Receive Date: 20070216
  Receipt Date: 20070212
  Transmission Date: 20070707
  Serious: Yes (Other)
  Sender: FDA-Public Use
  Company Number: US-BAYER-200615710BWH

PATIENT
  Age: 52 Year
  Sex: Male
  Weight: 64 kg

DRUGS (1)
  1. NEXAVAR [Suspect]
     Indication: RENAL CELL CARCINOMA STAGE UNSPECIFIED
     Dosage: TOTAL DAILY DOSE: 800 MG  UNIT DOSE: 200 MG
     Route: 048
     Dates: start: 20060901

REACTIONS (7)
  - BLOOD PRESSURE DECREASED [None]
  - ERYTHEMA [None]
  - FATIGUE [None]
  - HYPERKERATOSIS [None]
  - RASH [None]
  - TEMPERATURE INTOLERANCE [None]
  - WEIGHT DECREASED [None]
